FAERS Safety Report 22157117 (Version 1)
Quarter: 2023Q1

REPORT INFORMATION
  Report Type: Spontaneous
  Country: US (occurrence: US)
  Receive Date: 20230330
  Receipt Date: 20230330
  Transmission Date: 20230417
  Serious: No
  Sender: FDA-Public Use
  Company Number: US-BRISTOL-MYERS SQUIBB COMPANY-2023-045575

PATIENT
  Age: 74 Year
  Sex: Female
  Weight: 71.39 kg

DRUGS (2)
  1. NULOJIX [Suspect]
     Active Substance: BELATACEPT
     Indication: Renal transplant
     Route: 042
     Dates: start: 202106
  2. NULOJIX [Suspect]
     Active Substance: BELATACEPT
     Route: 042

REACTIONS (1)
  - Weight decreased [Unknown]
